FAERS Safety Report 10313033 (Version 1)
Quarter: 2014Q3

REPORT INFORMATION
  Report Type: Spontaneous
  Country: US (occurrence: None)
  Receive Date: 20140717
  Receipt Date: 20140717
  Transmission Date: 20150326
  Serious: No
  Sender: FDA-Public Use
  Company Number: None

PATIENT
  Age: 21 Year
  Sex: Male
  Weight: 56.7 kg

DRUGS (1)
  1. OXYCODONE [Suspect]
     Active Substance: OXYCODONE
     Indication: PAIN
     Dosage: 1 PILL ONCE DAILY TAKEN BY MOUTH
     Route: 048
     Dates: start: 20140601, end: 20140701

REACTIONS (6)
  - Headache [None]
  - Product substitution issue [None]
  - Toxicity to various agents [None]
  - Malaise [None]
  - Pyrexia [None]
  - Drug effect decreased [None]

NARRATIVE: CASE EVENT DATE: 20140601
